FAERS Safety Report 23377790 (Version 2)
Quarter: 2024Q2

REPORT INFORMATION
  Report Type: Spontaneous
  Country: US (occurrence: US)
  Receive Date: 20240108
  Receipt Date: 20240404
  Transmission Date: 20240716
  Serious: Yes (Other)
  Sender: FDA-Public Use
  Company Number: US-AMGEN-USASP2024000759

PATIENT
  Age: 90 Year
  Sex: Female

DRUGS (1)
  1. REPATHA [Suspect]
     Active Substance: EVOLOCUMAB
     Indication: Blood cholesterol abnormal
     Dosage: 420 MILLIGRAM/3.5 MILLILITRE, QMO
     Route: 058
     Dates: start: 2022

REACTIONS (5)
  - Hydrocephalus [Not Recovered/Not Resolved]
  - Cerebral atrophy [Not Recovered/Not Resolved]
  - Dementia [Unknown]
  - Drug dose omission by device [Unknown]
  - Device use error [Unknown]

NARRATIVE: CASE EVENT DATE: 20231201
